FAERS Safety Report 12114062 (Version 2)
Quarter: 2016Q2

REPORT INFORMATION
  Report Type: Spontaneous
  Country: US (occurrence: US)
  Receive Date: 20160225
  Receipt Date: 20160520
  Transmission Date: 20160815
  Serious: No
  Sender: FDA-Public Use
  Company Number: US-PFIZER INC-2016115636

PATIENT
  Age: 57 Year
  Sex: Male

DRUGS (2)
  1. GABAPENTIN. [Suspect]
     Active Substance: GABAPENTIN
     Dosage: 800 MG, 1X/DAY (800MG A DAY)
     Dates: start: 201506
  2. GABAPENTIN. [Suspect]
     Active Substance: GABAPENTIN
     Indication: ACCIDENT
     Dosage: 3 DF, DAILY

REACTIONS (1)
  - Drug ineffective for unapproved indication [Unknown]
